FAERS Safety Report 12547994 (Version 1)
Quarter: 2016Q3

REPORT INFORMATION
  Report Type: Spontaneous
  Country: US (occurrence: None)
  Receive Date: 20160711
  Receipt Date: 20160711
  Transmission Date: 20161109
  Serious: Yes (Other)
  Sender: FDA-Public Use
  Company Number: None

PATIENT
  Age: 37 Year
  Sex: Female
  Weight: 49.9 kg

DRUGS (6)
  1. PRE-NATAL PLUS MULTI-VITAMIN) [Concomitant]
  2. MELISSA OFFICINALIS [Concomitant]
     Active Substance: MELISSA OFFICINALIS
  3. MELATONIN [Concomitant]
     Active Substance: MELATONIN
  4. ARIPIPRAZOLE. [Suspect]
     Active Substance: ARIPIPRAZOLE
     Indication: JARISCH-HERXHEIMER REACTION
     Route: 048
     Dates: start: 20160614, end: 20160708
  5. ACYCLOVIR. [Concomitant]
     Active Substance: ACYCLOVIR
  6. LYSINE [Concomitant]
     Active Substance: LYSINE

REACTIONS (6)
  - Insomnia [None]
  - Disturbance in attention [None]
  - Somnolence [None]
  - Middle insomnia [None]
  - Vomiting [None]
  - Activities of daily living impaired [None]

NARRATIVE: CASE EVENT DATE: 20160707
